FAERS Safety Report 7195598-7 (Version None)
Quarter: 2010Q4

REPORT INFORMATION
  Report Type: 
  Country: None (occurrence: None)
  Receive Date: 20101223
  Receipt Date: 20101217
  Transmission Date: 20110411
  Serious: Yes (Death, Hospitalization)
  Sender: FDA-Public Use
  Company Number: US-GILEAD-2010-0034207

PATIENT
  Sex: Female

DRUGS (11)
  1. LETAIRIS [Suspect]
     Indication: PULMONARY ARTERIAL HYPERTENSION
     Route: 048
     Dates: start: 20101101
  2. LETAIRIS [Suspect]
     Route: 048
     Dates: start: 20101103, end: 20101126
  3. CIALIS [Concomitant]
  4. AMLODIPINE [Concomitant]
  5. COMBIVENT [Concomitant]
  6. QVAR 40 [Concomitant]
  7. DOCUSATE [Concomitant]
  8. HYDROMORPHONE HCL [Concomitant]
  9. GABAPENTIN [Concomitant]
  10. LORAZEPAM [Concomitant]
  11. ALENDRONATE SODIUM [Concomitant]

REACTIONS (2)
  - PULMONARY EMBOLISM [None]
  - RESPIRATORY FAILURE [None]
